FAERS Safety Report 5834019-0 (Version None)
Quarter: 2008Q3

REPORT INFORMATION
  Report Type: 
  Country: None (occurrence: None)
  Receive Date: 20080804
  Receipt Date: 20080804
  Transmission Date: 20090109
  Serious: Yes (Other)
  Sender: FDA-Public Use
  Company Number: None

PATIENT
  Age: 9 Year
  Sex: Male
  Weight: 27.6694 kg

DRUGS (1)
  1. ALBUTEROL INHALER HFA 90 MCG ARMSTRONG [Suspect]
     Indication: ASTHMA
     Dosage: TWO PUFFS WHEN NEEDED
     Route: 055
     Dates: start: 20080326, end: 20080326

REACTIONS (3)
  - ASTHMA [None]
  - CONDITION AGGRAVATED [None]
  - THERAPEUTIC RESPONSE UNEXPECTED WITH DRUG SUBSTITUTION [None]
